FAERS Safety Report 4886187-5 (Version None)
Quarter: 2006Q1

REPORT INFORMATION
  Report Type: 
  Country: None (occurrence: None)
  Receive Date: 20060118
  Receipt Date: 20060118
  Transmission Date: 20060701
  Serious: Yes (Hospitalization)
  Sender: FDA-Public Use
  Company Number: None

PATIENT
  Age: 44 Year
  Sex: Male
  Weight: 138.8007 kg

DRUGS (1)
  1. REMICADE [Suspect]
     Indication: COLITIS ULCERATIVE
     Dosage: 700 MG IV
     Route: 042
     Dates: start: 20051229

REACTIONS (4)
  - DRUG HYPERSENSITIVITY [None]
  - ELECTROLYTE IMBALANCE [None]
  - HYPOTENSION [None]
  - URTICARIA [None]
